FAERS Safety Report 19483317 (Version 5)
Quarter: 2022Q1

REPORT INFORMATION
  Report Type: Report from Study
  Country: US (occurrence: US)
  Receive Date: 20210701
  Receipt Date: 20220323
  Transmission Date: 20220423
  Serious: Yes (Other)
  Sender: FDA-Public Use
  Company Number: US-SHIRE-US202021992

PATIENT
  Sex: Female

DRUGS (2)
  1. HUMAN IMMUNOGLOBULIN G [Suspect]
     Active Substance: HUMAN IMMUNOGLOBULIN G
     Indication: Primary immunodeficiency syndrome
     Dosage: UNK
     Route: 065
  2. GAMUNEX-C [Suspect]
     Active Substance: HUMAN IMMUNOGLOBULIN G
     Indication: Primary immunodeficiency syndrome
     Dosage: UNK
     Route: 042

REACTIONS (11)
  - Bipolar disorder [Unknown]
  - Disability [Unknown]
  - Suspected COVID-19 [Unknown]
  - Mental disorder [Unknown]
  - Anxiety [Unknown]
  - Fatigue [Unknown]
  - Illness [Unknown]
  - Pain [Unknown]
  - Treatment noncompliance [Unknown]
  - Headache [Unknown]
  - Therapy change [Unknown]
